FAERS Safety Report 7331648-2 (Version None)
Quarter: 2011Q1

REPORT INFORMATION
  Report Type: 
  Country: None (occurrence: None)
  Receive Date: 20110304
  Receipt Date: 20110223
  Transmission Date: 20110831
  Serious: Yes (Hospitalization, Other)
  Sender: FDA-Public Use
  Company Number: CZ-NOVOPROD-322711

PATIENT
  Sex: Female
  Weight: 90 kg

DRUGS (5)
  1. LEVEMIR [Suspect]
     Indication: GESTATIONAL DIABETES
     Dosage: 16 UNK, UNK
     Dates: start: 20090301, end: 20090604
  2. NOVORAPID [Suspect]
     Indication: GESTATIONAL DIABETES
     Dosage: 12 UNK, UNK
     Dates: start: 20090501
  3. MALTOFER                           /00383901/ [Concomitant]
     Indication: ANAEMIA
     Dosage: 2 TAB, QD
     Dates: start: 20090127
  4. METHYLDOPA [Concomitant]
     Indication: HYPERTENSION
     Dosage: 1 TAB, TID
     Route: 048
     Dates: start: 20090201, end: 20090604
  5. ESSENTIAL [Concomitant]
     Dosage: 2 TAB, QD

REACTIONS (2)
  - PRE-ECLAMPSIA [None]
  - DRUG EXPOSURE DURING PREGNANCY [None]
